FAERS Safety Report 7390165-4 (Version None)
Quarter: 2011Q2

REPORT INFORMATION
  Report Type: 
  Country: None (occurrence: None)
  Receive Date: 20110401
  Receipt Date: 20110324
  Transmission Date: 20111010
  Serious: Yes (Other)
  Sender: FDA-Public Use
  Company Number: PHHY2011US19968

PATIENT
  Sex: Female

DRUGS (5)
  1. CITALOPRAM HYDROBROMIDE [Concomitant]
     Indication: DEPRESSION
     Dosage: 1 DF, DAILY
     Route: 048
     Dates: start: 20101101
  2. GILENYA [Suspect]
     Indication: MULTIPLE SCLEROSIS
     Dosage: 0.5 MG, QD
     Route: 048
     Dates: start: 20110106, end: 20110209
  3. VITAMIN D [Concomitant]
     Indication: SUPPLEMENTATION THERAPY
     Dosage: DAILY
     Route: 048
     Dates: start: 20100101
  4. CRANBERRY [Concomitant]
     Indication: PROPHYLAXIS URINARY TRACT INFECTION
     Dosage: DAILY
     Route: 048
     Dates: start: 20100101
  5. GABAPENTIN [Concomitant]
     Indication: PARAESTHESIA
     Dosage: 1 DF, TID
     Route: 048
     Dates: start: 20101101

REACTIONS (1)
  - BREAST CANCER [None]
